FAERS Safety Report 23942842 (Version 2)
Quarter: 2024Q2

REPORT INFORMATION
  Report Type: Report from Study
  Country: IN (occurrence: IN)
  Receive Date: 20240605
  Receipt Date: 20240607
  Transmission Date: 20240715
  Serious: Yes (Life-Threatening, Hospitalization, Other)
  Sender: FDA-Public Use
  Company Number: IN-002147023-NVSC2024IN033987

PATIENT

DRUGS (2)
  1. RUXOLITINIB [Suspect]
     Active Substance: RUXOLITINIB
     Indication: Primary myelofibrosis
     Dosage: 5 MG, BID (FROM LAST THREE AND HALF MONTHS (DATE NOT SPECIFIED)
     Route: 048
  2. RUXOLITINIB [Suspect]
     Active Substance: RUXOLITINIB
     Dosage: 10 MG, BID
     Route: 048
     Dates: start: 20230912

REACTIONS (4)
  - Laboratory test abnormal [Unknown]
  - Bicytopenia [Unknown]
  - Haemoglobin decreased [Recovered/Resolved]
  - Platelet disorder [Unknown]
